FAERS Safety Report 4266081-3 (Version None)
Quarter: 2004Q1

REPORT INFORMATION
  Report Type: 
  Country: None (occurrence: None)
  Receive Date: 20040106
  Receipt Date: 20031222
  Transmission Date: 20041129
  Serious: Yes (Hospitalization)
  Sender: FDA-Public Use
  Company Number: CERZ-10479

PATIENT
  Age: 43 Year
  Sex: Female
  Weight: 46 kg

DRUGS (9)
  1. CEREZYME [Suspect]
     Indication: GAUCHER'S DISEASE
     Dosage: 60 U /KG Q2WKS IV
     Route: 042
     Dates: start: 19970416, end: 20000405
  2. CEREZYME [Suspect]
     Indication: GAUCHER'S DISEASE
     Dosage: 60 U/KG Q2WKS IV
     Route: 042
     Dates: start: 20000523
  3. NILVADIPINE [Concomitant]
  4. DICLOFENAC SODIUM [Concomitant]
  5. TEPRENONE [Concomitant]
  6. INDOMETHACIN [Concomitant]
  7. ALFACALCIDOL [Concomitant]
  8. CALCIUM LACTATE [Concomitant]
  9. ATENOLOL [Concomitant]

REACTIONS (6)
  - ALANINE AMINOTRANSFERASE INCREASED [None]
  - ASPARTATE AMINOTRANSFERASE INCREASED [None]
  - BRONCHITIS [None]
  - DUODENAL ULCER [None]
  - PYOTHORAX [None]
  - WHITE BLOOD CELL COUNT INCREASED [None]
